FAERS Safety Report 16709544 (Version 1)
Quarter: 2019Q3

REPORT INFORMATION
  Report Type: Spontaneous
  Country: PL (occurrence: PL)
  Receive Date: 20190816
  Receipt Date: 20190816
  Transmission Date: 20191004
  Serious: Yes (Other)
  Sender: FDA-Public Use
  Company Number: PL-MYLANLABS-2019M1075814

PATIENT
  Age: 20 Year
  Sex: Female

DRUGS (4)
  1. FEVARIN [Suspect]
     Active Substance: FLUVOXAMINE MALEATE
     Indication: ANXIETY
     Dosage: 200 MILLIGRAM, QD
     Dates: start: 201512
  2. FEVARIN [Suspect]
     Active Substance: FLUVOXAMINE MALEATE
     Indication: DEPRESSION
     Dosage: 100 MILLIGRAM, QD
     Dates: start: 201511
  3. FEVARIN [Suspect]
     Active Substance: FLUVOXAMINE MALEATE
     Indication: DEPRESSION
     Dosage: 100 MILLIGRAM, QD
     Dates: start: 201512
  4. FEVARIN [Suspect]
     Active Substance: FLUVOXAMINE MALEATE
     Indication: ANXIETY

REACTIONS (8)
  - Somnolence [Unknown]
  - Mental impairment [Unknown]
  - Affect lability [Unknown]
  - Product dispensing error [Unknown]
  - Disturbance in attention [Unknown]
  - Irritability [Unknown]
  - Aggression [Unknown]
  - Agitation [Unknown]

NARRATIVE: CASE EVENT DATE: 201511
